FAERS Safety Report 12882279 (Version 4)
Quarter: 2016Q4

REPORT INFORMATION
  Report Type: Spontaneous
  Country: ES (occurrence: ES)
  Receive Date: 20161025
  Receipt Date: 20161104
  Transmission Date: 20170207
  Serious: Yes (Other)
  Sender: FDA-Public Use
  Company Number: PHHY2016ES146205

PATIENT
  Age: 42 Year
  Sex: Male

DRUGS (12)
  1. LISINOPRIL. [Suspect]
     Active Substance: LISINOPRIL
     Indication: HYPERTENSION
     Dosage: 10 MG, QD
     Route: 048
     Dates: start: 20160712, end: 20160724
  2. LUMINAL [Interacting]
     Active Substance: PHENOBARBITAL SODIUM
     Indication: EPILEPSY
     Dosage: 100 MG, QD
     Route: 048
     Dates: start: 20160329
  3. NOIAFREN [Concomitant]
     Active Substance: CLOBAZAM
     Indication: EPILEPSY
     Dosage: 35 MG, UNK
     Route: 048
     Dates: start: 20080813
  4. LUMINAL [Interacting]
     Active Substance: PHENOBARBITAL SODIUM
     Dosage: DOUBLE DOSE
     Route: 048
  5. OMEPRAZOL CINFAMED [Concomitant]
     Indication: DYSPEPSIA
     Dosage: 20 MG, BID
     Route: 048
     Dates: start: 20040615
  6. FOLI-DOCE [Interacting]
     Active Substance: CYANOCOBALAMIN\FOLIC ACID
     Indication: HYPOVITAMINOSIS
     Dosage: 1 DF, QD
     Route: 048
     Dates: start: 20160506
  7. TEGRETOL [Interacting]
     Active Substance: CARBAMAZEPINE
     Indication: EPILEPSY
     Dosage: 1200 MG, TID
     Route: 048
     Dates: start: 20141218
  8. TROBALT [Interacting]
     Active Substance: EZOGABINE
     Indication: EPILEPSY
     Dosage: 300 MG, QID
     Route: 048
     Dates: start: 20091113
  9. DEPRAX [Interacting]
     Active Substance: TRAZODONE HYDROCHLORIDE
     Indication: INSOMNIA
     Dosage: 100 MG, QD
     Route: 048
     Dates: start: 20121219
  10. EZETROL [Concomitant]
     Active Substance: EZETIMIBE
     Indication: HYPERCHOLESTEROLAEMIA
     Dosage: 10 MG, QD
     Route: 048
     Dates: start: 20160329
  11. LISINOPRIL. [Interacting]
     Active Substance: LISINOPRIL
     Dosage: 10 MG, QD
     Route: 048
     Dates: start: 20160808
  12. SECALIP [Concomitant]
     Active Substance: FENOFIBRATE
     Indication: HYPERLIPIDAEMIA
     Dosage: 160 MG, QD
     Route: 048
     Dates: start: 20160129

REACTIONS (2)
  - Epilepsy [Recovered/Resolved]
  - Malaise [Recovered/Resolved]

NARRATIVE: CASE EVENT DATE: 20160712
